FAERS Safety Report 18119034 (Version 2)
Quarter: 2020Q3

REPORT INFORMATION
  Report Type: Report from Study
  Country: None (occurrence: US)
  Receive Date: 20200806
  Receipt Date: 20200824
  Transmission Date: 20201103
  Serious: Yes (Hospitalization, Other)
  Sender: FDA-Public Use
  Company Number: US-ABBVIE-16K-163-3035340-00

PATIENT
  Age: 68 Year
  Sex: Male
  Weight: 91 kg

DRUGS (62)
  1. MIDAZOLAM. [Concomitant]
     Active Substance: MIDAZOLAM
     Indication: ANXIETY
  2. HYDROMORPHONE [Concomitant]
     Active Substance: HYDROMORPHONE
     Indication: PROCEDURAL PAIN
     Dosage: 0.5 MG, UNK
     Route: 042
     Dates: start: 20160422, end: 20160422
  3. HEMOPHILUS INFLUENZAE B VACCINES [Concomitant]
     Indication: INFECTION PROPHYLAXIS
     Dosage: 10 UG, QD
     Route: 030
     Dates: start: 20160429, end: 20160429
  4. LORAZEPAM. [Concomitant]
     Active Substance: LORAZEPAM
     Indication: ANXIETY
     Dosage: 0.5 MG, PRN
     Route: 042
     Dates: start: 20160423, end: 20160424
  5. LEVAQUIN [Concomitant]
     Active Substance: LEVOFLOXACIN
     Indication: SEPSIS
     Dosage: 750 MG, QD
     Route: 042
     Dates: start: 20160906, end: 20160907
  6. AMLODIPINE [Concomitant]
     Active Substance: AMLODIPINE BESYLATE
     Indication: HYPERTENSION
     Dosage: 2.5 MG, QD
     Route: 048
     Dates: start: 20140403
  7. FENTANYL. [Concomitant]
     Active Substance: FENTANYL
     Indication: SEDATIVE THERAPY
     Dosage: 50 UG, UNK
     Route: 042
     Dates: start: 20160429, end: 20160429
  8. FENTANYL. [Concomitant]
     Active Substance: FENTANYL
     Indication: PROCEDURAL PAIN
     Dosage: 50 UG, UNK
     Route: 042
     Dates: start: 20160422, end: 20160422
  9. NORMAL SALINE [Concomitant]
     Active Substance: SODIUM CHLORIDE
     Indication: HYPERCALCAEMIA
     Dosage: 1000 ML, EVERY 10 HOURS
     Route: 042
     Dates: start: 20160423, end: 20160428
  10. MENINGOCOCCAL B VACCINE [Concomitant]
     Indication: INFECTION PROPHYLAXIS
     Dosage: 0.5 MG, QD
     Route: 030
     Dates: start: 20160426, end: 20160426
  11. TRAMADOL. [Concomitant]
     Active Substance: TRAMADOL
     Indication: ABDOMINAL PAIN
     Dosage: 50 MG, QD
     Route: 048
     Dates: start: 20160429, end: 20160429
  12. MORPHINE SULFATE. [Concomitant]
     Active Substance: MORPHINE SULFATE
     Indication: ABDOMINAL PAIN
     Dosage: 4 MG, PRN
     Route: 042
     Dates: start: 20160421, end: 20160421
  13. VITAMIN D3 [Concomitant]
     Active Substance: CHOLECALCIFEROL
     Indication: VITAMIN SUPPLEMENTATION
     Dosage: 1000 IU, QD
     Route: 048
     Dates: start: 201512
  14. SILDENAFIL. [Concomitant]
     Active Substance: SILDENAFIL
     Indication: ERECTILE DYSFUNCTION
     Dosage: 50 MG, PRN
     Route: 048
     Dates: start: 20140506
  15. FLAGYL [Concomitant]
     Active Substance: METRONIDAZOLE\METRONIDAZOLE HYDROCHLORIDE
     Indication: SEPSIS
     Dosage: 100 ML, TID
     Route: 042
     Dates: start: 20160906, end: 20160907
  16. IMBRUVICA [Suspect]
     Active Substance: IBRUTINIB
     Indication: LYMPHOCYTOSIS
     Dosage: 420 MG, QD
     Route: 048
     Dates: start: 20160314, end: 20160421
  17. AMLODIPINE [Concomitant]
     Active Substance: AMLODIPINE BESYLATE
     Indication: NAUSEA
     Dosage: 8 MG, PRN
     Route: 048
     Dates: start: 20160206
  18. ONDANSETRON [Concomitant]
     Active Substance: ONDANSETRON
     Indication: NAUSEA
     Dosage: 4 MG, PRN
     Route: 042
     Dates: start: 20160421, end: 20160428
  19. ONDANSETRON [Concomitant]
     Active Substance: ONDANSETRON
     Dosage: 8 MG, PRN
     Route: 042
     Dates: start: 20160506, end: 20160507
  20. HYDROMORPHONE [Concomitant]
     Active Substance: HYDROMORPHONE
     Indication: PROCEDURAL PAIN
  21. POTASSIUM CHLORIDE. [Concomitant]
     Active Substance: POTASSIUM CHLORIDE
     Dosage: 40 MEQ, QD
     Route: 048
     Dates: start: 20160428, end: 20160428
  22. NORMAL SALINE [Concomitant]
     Active Substance: SODIUM CHLORIDE
     Dosage: 2000 ML, QD
     Route: 042
     Dates: start: 20160412, end: 20160415
  23. OXALIPLATIN. [Concomitant]
     Active Substance: OXALIPLATIN
     Dosage: 190 UNK, UNK
     Route: 042
     Dates: start: 20160712, end: 20160830
  24. IMBRUVICA [Suspect]
     Active Substance: IBRUTINIB
     Indication: LYMPHADENOPATHY
     Dosage: 140 MG, QD
     Route: 048
     Dates: start: 20160802, end: 20160808
  25. OMEPRAZOLE. [Concomitant]
     Active Substance: OMEPRAZOLE
     Indication: GASTROOESOPHAGEAL REFLUX DISEASE
     Dosage: 20 MG, QD
     Route: 048
     Dates: start: 20160128
  26. MENINGOCOCCAL B VACCINE [Concomitant]
     Indication: INFECTION
  27. HEMOPHILUS INFLUENZAE B VACCINES [Concomitant]
     Indication: INFECTION PROPHYLAXIS
  28. HEMOPHILUS INFLUENZAE B VACCINES [Concomitant]
     Indication: INFECTION PROPHYLAXIS
  29. TOBREX [Concomitant]
     Active Substance: TOBRAMYCIN
     Indication: CONJUNCTIVITIS
     Dosage: 1 DROP EVERY 4 HOURS
     Route: 047
     Dates: start: 20160406, end: 20160420
  30. PANTOPRAZOLE [Concomitant]
     Active Substance: PANTOPRAZOLE
     Indication: GASTROOESOPHAGEAL REFLUX DISEASE
     Dosage: 20 MG, QD
     Route: 048
     Dates: start: 20160506, end: 20160508
  31. IMBRUVICA [Suspect]
     Active Substance: IBRUTINIB
     Indication: CHRONIC LYMPHOCYTIC LEUKAEMIA STAGE 3
     Dosage: 420 MG, QD
     Route: 048
     Dates: start: 20160205, end: 20160311
  32. IMBRUVICA [Suspect]
     Active Substance: IBRUTINIB
     Indication: SPLENOMEGALY
     Dosage: 420 MG, QD
     Route: 048
     Dates: start: 20160205, end: 20160405
  33. ENALAPRIL [Concomitant]
     Active Substance: ENALAPRIL
     Indication: HYPERTENSION
     Dosage: 1 DF, QD
     Route: 048
     Dates: start: 20120620
  34. HYDROCHLOROTHIAZIDE. [Concomitant]
     Active Substance: HYDROCHLOROTHIAZIDE
     Indication: PRODUCT USED FOR UNKNOWN INDICATION
  35. VITAMIN D [ERGOCALCIFEROL] [Concomitant]
     Active Substance: ERGOCALCIFEROL
     Indication: PRODUCT USED FOR UNKNOWN INDICATION
  36. NORMAL SALINE [Concomitant]
     Active Substance: SODIUM CHLORIDE
     Indication: PROPHYLAXIS
     Dosage: 150 ML, UNK
     Route: 042
     Dates: start: 20160505, end: 20160508
  37. PREDNISONE. [Concomitant]
     Active Substance: PREDNISONE
     Indication: SPLENOMEGALY
  38. LEVAQUIN [Concomitant]
     Active Substance: LEVOFLOXACIN
     Dosage: 750 MG, QD
     Route: 048
     Dates: start: 20160606, end: 20160615
  39. ALLOPURINOL. [Concomitant]
     Active Substance: ALLOPURINOL
     Indication: PROPHYLAXIS
     Dosage: 300 MG, QD
     Route: 048
     Dates: start: 20160205
  40. POTASSIUM CHLORIDE. [Concomitant]
     Active Substance: POTASSIUM CHLORIDE
     Indication: HYPOKALAEMIA
     Dosage: 40 UG, UNK
     Route: 048
     Dates: start: 20160426, end: 20160426
  41. ENOXAPARIN [Concomitant]
     Active Substance: ENOXAPARIN
     Indication: THROMBOSIS PROPHYLAXIS
     Dosage: 30 MG, QD
     Route: 058
     Dates: start: 20160423, end: 20160427
  42. ACETAMINOPHEN. [Concomitant]
     Active Substance: ACETAMINOPHEN
     Indication: PROCEDURAL PAIN
     Dosage: 1000 MG, QID
     Route: 042
     Dates: start: 20160423, end: 20160428
  43. ACETAMINOPHEN. [Concomitant]
     Active Substance: ACETAMINOPHEN
     Dosage: 1000 MG, QD
     Route: 048
     Dates: start: 20160429, end: 20160429
  44. GEMCITABINE. [Concomitant]
     Active Substance: GEMCITABINE
     Dosage: 1930 MG, UNK
     Route: 042
     Dates: start: 20160802, end: 20160830
  45. IMBRUVICA [Suspect]
     Active Substance: IBRUTINIB
     Indication: ANAEMIA
     Dosage: 420 MG, QD
     Route: 048
     Dates: start: 2016, end: 20160905
  46. IMBRUVICA [Suspect]
     Active Substance: IBRUTINIB
     Route: 048
     Dates: start: 20160205, end: 20160421
  47. ASPIRIN [ACETYLSALICYLIC ACID] [Concomitant]
     Active Substance: ASPIRIN
     Indication: CARDIOVASCULAR EVENT PROPHYLAXIS
     Dosage: 81 MG, QD
     Route: 048
     Dates: start: 20061231
  48. ALLOPURINOL. [Concomitant]
     Active Substance: ALLOPURINOL
     Indication: PROPHYLAXIS
  49. VIAGRA [SILDENAFIL CITRATE] [Concomitant]
     Indication: PRODUCT USED FOR UNKNOWN INDICATION
  50. FENTANYL. [Concomitant]
     Active Substance: FENTANYL
     Dosage: 10 UG, PRN
     Route: 042
     Dates: start: 20160422, end: 20160428
  51. MIDAZOLAM. [Concomitant]
     Active Substance: MIDAZOLAM
     Indication: PROPHYLAXIS
     Dosage: 2 MG, UNK
     Route: 042
     Dates: start: 20160422, end: 20160422
  52. TRAMADOL. [Concomitant]
     Active Substance: TRAMADOL
     Indication: ABDOMINAL PAIN
  53. PREDNISONE. [Concomitant]
     Active Substance: PREDNISONE
     Indication: SPLENOMEGALY
     Dosage: 20 MG, QD
     Route: 048
     Dates: start: 20160420, end: 20160621
  54. FAMOTIDINE. [Concomitant]
     Active Substance: FAMOTIDINE
     Indication: GASTROOESOPHAGEAL REFLUX DISEASE
     Dosage: 20 MG, BID
     Route: 048
     Dates: start: 20160422, end: 20160429
  55. OXALIPLATIN. [Concomitant]
     Active Substance: OXALIPLATIN
     Indication: B-CELL LYMPHOMA
     Dosage: 190 MG, UNK
     Dates: start: 20160802, end: 20160830
  56. CALCIUM GLUCONATE. [Concomitant]
     Active Substance: CALCIUM GLUCONATE
     Indication: HYPOCALCAEMIA
     Dosage: 1000 MG, QD
     Route: 042
     Dates: start: 20160906, end: 20160907
  57. IMBRUVICA [Suspect]
     Active Substance: IBRUTINIB
     Indication: HEPATOMEGALY
     Dosage: 280 MG, QD
     Route: 048
     Dates: start: 20160809, end: 20160913
  58. ONDANSETRON [Concomitant]
     Active Substance: ONDANSETRON
     Dosage: 8 MG, PRN
     Route: 048
     Dates: start: 20160206
  59. ENOXAPARIN [Concomitant]
     Active Substance: ENOXAPARIN
     Indication: THROMBOSIS PROPHYLAXIS
     Dosage: 40.0 IU, QD
     Route: 058
     Dates: start: 20160505, end: 20160508
  60. MIRALAX [Concomitant]
     Active Substance: POLYETHYLENE GLYCOL 3350
     Indication: CONSTIPATION
     Dosage: 1 CAPFUL, PRN
     Route: 048
     Dates: start: 20160205
  61. GEMCITABINE. [Concomitant]
     Active Substance: GEMCITABINE
     Indication: B-CELL LYMPHOMA
     Dosage: 1940 MG, UNK
     Route: 042
     Dates: start: 20160715, end: 20160719
  62. ZOLEDRONIC ACID [Concomitant]
     Active Substance: ZOLEDRONIC ACID
     Indication: HYPERCALCAEMIA
     Dosage: 4 MG, UNK
     Route: 042
     Dates: start: 20160412, end: 20160412

REACTIONS (2)
  - Rash macular [Recovered/Resolved]
  - B-cell lymphoma [Recovered/Resolved]

NARRATIVE: CASE EVENT DATE: 20160311
